FAERS Safety Report 8370206-8 (Version None)
Quarter: 2012Q2

REPORT INFORMATION
  Report Type: 
  Country: None (occurrence: None)
  Receive Date: 20120518
  Receipt Date: 20120507
  Transmission Date: 20120825
  Serious: Yes (Hospitalization)
  Sender: FDA-Public Use
  Company Number: FR-ELI_LILLY_AND_COMPANY-FR201205001893

PATIENT
  Sex: Male

DRUGS (12)
  1. ATARAX [Concomitant]
  2. PANTOPRAZOLE [Concomitant]
  3. DIPROSONE [Concomitant]
  4. EPREX [Concomitant]
  5. ATORVASTATIN [Concomitant]
  6. POLYETHYLENE GLYCOL [Concomitant]
  7. ZOMETA [Concomitant]
     Indication: LUNG ADENOCARCINOMA
     Dosage: UNK
     Route: 042
     Dates: start: 20111209, end: 20111209
  8. ASPIRIN [Concomitant]
  9. OXYCONTIN [Concomitant]
  10. CARBOPLATIN [Concomitant]
     Indication: LUNG ADENOCARCINOMA
     Dosage: UNK
     Dates: start: 20111209, end: 20111230
  11. ALIMTA [Suspect]
     Indication: LUNG ADENOCARCINOMA
     Dosage: 500 MG, UNKNOWN
     Route: 042
     Dates: start: 20111209
  12. METOPROLOL [Concomitant]

REACTIONS (1)
  - OSTEONECROSIS [None]
